FAERS Safety Report 22350334 (Version 1)
Quarter: 2023Q2

REPORT INFORMATION
  Report Type: Spontaneous
  Country: US (occurrence: None)
  Receive Date: 20230520
  Receipt Date: 20230520
  Transmission Date: 20230721
  Serious: Yes (Hospitalization, Disabling, Other)
  Sender: FDA-Public Use
  Company Number: None

PATIENT
  Age: 51 Year
  Sex: Male
  Weight: 72 kg

DRUGS (6)
  1. MOUNJARO [Suspect]
     Active Substance: TIRZEPATIDE
     Indication: Glucose tolerance impaired
     Dosage: FREQUENCY : WEEKLY;?
     Route: 058
     Dates: start: 20221124, end: 20230330
  2. CABENUVA [Concomitant]
     Active Substance: CABOTEGRAVIR\RILPIVIRINE
  3. ACYCLOVIR [Concomitant]
     Active Substance: ACYCLOVIR
  4. DUTASTERIDE [Concomitant]
     Active Substance: DUTASTERIDE
  5. MINOXIDIL [Concomitant]
     Active Substance: MINOXIDIL
  6. PROZAC [Concomitant]
     Active Substance: FLUOXETINE HYDROCHLORIDE

REACTIONS (3)
  - Anuria [None]
  - Constipation [None]
  - Cholecystitis [None]

NARRATIVE: CASE EVENT DATE: 20230426
